FAERS Safety Report 6863665-0 (Version None)
Quarter: 2010Q3

REPORT INFORMATION
  Report Type: 
  Country: None (occurrence: None)
  Receive Date: 20100721
  Receipt Date: 20080307
  Transmission Date: 20110219
  Serious: No
  Sender: FDA-Public Use
  Company Number: US-PFIZER INC-2008022959

PATIENT
  Sex: Female
  Weight: 51.818 kg

DRUGS (7)
  1. CHANTIX [Interacting]
     Indication: SMOKING CESSATION THERAPY
     Dates: start: 20080301
  2. FOSAMAX [Suspect]
     Indication: OSTEOPOROSIS
  3. ALCOHOL [Interacting]
     Dates: start: 20080301
  4. LIPITOR [Concomitant]
  5. PROZAC [Concomitant]
  6. METOPROLOL [Concomitant]
  7. ASPIRIN [Concomitant]

REACTIONS (7)
  - COUGH [None]
  - DRUG INTERACTION [None]
  - DYSGEUSIA [None]
  - NAUSEA [None]
  - NERVOUSNESS [None]
  - RETCHING [None]
  - VOMITING [None]
